FAERS Safety Report 16162851 (Version 2)
Quarter: 2019Q3

REPORT INFORMATION
  Report Type: Spontaneous
  Country: US (occurrence: US)
  Receive Date: 20190405
  Receipt Date: 20190729
  Transmission Date: 20191004
  Serious: No
  Sender: FDA-Public Use
  Company Number: US-PFIZER INC-2019137515

PATIENT
  Sex: Female

DRUGS (1)
  1. MEDROXYPROGESTERONE ACETATE. [Suspect]
     Active Substance: MEDROXYPROGESTERONE ACETATE
     Indication: HOT FLUSH
     Dosage: UNK

REACTIONS (2)
  - Vaginal haemorrhage [Unknown]
  - Drug ineffective [Unknown]
